FAERS Safety Report 6811770-7 (Version None)
Quarter: 2010Q3

REPORT INFORMATION
  Report Type: 
  Country: None (occurrence: None)
  Receive Date: 20100701
  Receipt Date: 20100628
  Transmission Date: 20110219
  Serious: Yes (Other)
  Sender: FDA-Public Use
  Company Number: US-ASTRAZENECA-2007UW13906

PATIENT
  Age: 36 Year
  Sex: Male
  Weight: 97.5 kg

DRUGS (17)
  1. SEROQUEL [Suspect]
     Indication: SLEEP DISORDER
     Dosage: 100-200 MG
     Route: 048
     Dates: start: 20000323, end: 20001106
  2. SEROQUEL [Suspect]
     Indication: HALLUCINATION, AUDITORY
     Dosage: 100-200 MG
     Route: 048
     Dates: start: 20000323, end: 20001106
  3. SEROQUEL [Suspect]
     Indication: BIPOLAR DISORDER
     Dosage: 100-200 MG
     Route: 048
     Dates: start: 20000323, end: 20001106
  4. SEROQUEL [Suspect]
     Route: 048
     Dates: start: 20010425, end: 20010910
  5. SEROQUEL [Suspect]
     Route: 048
     Dates: start: 20010425, end: 20010910
  6. SEROQUEL [Suspect]
     Route: 048
     Dates: start: 20010425, end: 20010910
  7. SEROQUEL [Suspect]
     Dosage: 50MG TO 100MG
     Route: 048
     Dates: start: 20051210
  8. SEROQUEL [Suspect]
     Dosage: 50MG TO 100MG
     Route: 048
     Dates: start: 20051210
  9. SEROQUEL [Suspect]
     Dosage: 50MG TO 100MG
     Route: 048
     Dates: start: 20051210
  10. ATENOLOL [Concomitant]
     Indication: HYPERTENSION
     Route: 048
     Dates: start: 20050927
  11. CARBAMAZEPINE [Concomitant]
     Indication: CONVULSION
     Route: 048
     Dates: start: 20050927
  12. FLUOXETINE HYDROCHLORIDE [Concomitant]
     Indication: DEPRESSION
     Route: 048
     Dates: start: 20051107
  13. GLYBURIDE [Concomitant]
     Indication: DIABETES MELLITUS
     Route: 048
     Dates: start: 20050927
  14. ASPIRIN [Concomitant]
  15. TRAZODONE HYDROCHLORIDE [Concomitant]
     Indication: SLEEP DISORDER
     Dosage: 50MG EVERY BEDTIME AS NEEDED
     Route: 048
     Dates: start: 20051128
  16. RISPERDAL [Concomitant]
     Indication: BIPOLAR DISORDER
     Dates: start: 19940101, end: 20040101
  17. ZYPREXA [Concomitant]
     Indication: BIPOLAR DISORDER

REACTIONS (8)
  - CARDIAC DISORDER [None]
  - CHEST PAIN [None]
  - DIABETIC FOOT [None]
  - DIABETIC NEUROPATHIC ULCER [None]
  - DIABETIC NEUROPATHY [None]
  - HYPOGLYCAEMIA [None]
  - NEUROPATHY PERIPHERAL [None]
  - TYPE 2 DIABETES MELLITUS [None]
